FAERS Safety Report 9479274 (Version 2)
Quarter: 2014Q1

REPORT INFORMATION
  Report Type: Spontaneous
  Country: US (occurrence: US)
  Receive Date: 20130827
  Receipt Date: 20140207
  Transmission Date: 20141002
  Serious: Yes (Hospitalization)
  Sender: FDA-Public Use
  Company Number: US-B.I. PHARMACEUTICALS,INC./RIDGEFIELD-2013-BI-26092BP

PATIENT
  Age: 82 Year
  Sex: Male
  Weight: 77.11 kg

DRUGS (7)
  1. PRADAXA [Suspect]
     Indication: ATRIAL FIBRILLATION
     Dosage: 300 MG
     Dates: start: 201203, end: 201204
  2. ASPIRIN [Concomitant]
     Dosage: 81 MG
  3. LISINOPRIL [Concomitant]
     Dosage: 5 MG
     Dates: start: 2008, end: 2012
  4. METFORMIN [Concomitant]
     Dosage: 2000 MG
     Dates: start: 2011, end: 2012
  5. MULTIVITAMINS [Concomitant]
  6. SIMVASTATIN [Concomitant]
     Dosage: 10 MG
  7. CARDIZEM CD [Concomitant]
     Dosage: 180 MG

REACTIONS (1)
  - Gastrointestinal haemorrhage [Recovered/Resolved]
